FAERS Safety Report 8243824-5 (Version None)
Quarter: 2012Q1

REPORT INFORMATION
  Report Type: 
  Country: None (occurrence: None)
  Receive Date: 20120316
  Receipt Date: 20101005
  Transmission Date: 20120608
  Serious: Yes (Other)
  Sender: FDA-Public Use
  Company Number: PHHY2010US57063

PATIENT
  Age: 35 Year
  Sex: Female

DRUGS (1)
  1. EXTAVIA [Suspect]
     Indication: MULTIPLE SCLEROSIS
     Dosage: GIVEN EVERY OTHER DAY (QOD), SUBCUTANEOUS
     Route: 058
     Dates: start: 20100804

REACTIONS (3)
  - DEPRESSED MOOD [None]
  - TEARFULNESS [None]
  - BURNING SENSATION [None]
